FAERS Safety Report 15416494 (Version 16)
Quarter: 2021Q1

REPORT INFORMATION
  Report Type: Report from Study
  Country: CA (occurrence: CA)
  Receive Date: 20180924
  Receipt Date: 20210227
  Transmission Date: 20210419
  Serious: Yes (Hospitalization, Other)
  Sender: FDA-Public Use
  Company Number: PHHY2017CA072370

PATIENT
  Age: 66 Year
  Sex: Female

DRUGS (14)
  1. SANDOSTATIN LAR DEPOT [Suspect]
     Active Substance: OCTREOTIDE ACETATE
     Dosage: 30 MG, Q 3?4 WEEKS
     Route: 030
     Dates: start: 20190909
  2. SANDOSTATIN [Suspect]
     Active Substance: OCTREOTIDE ACETATE
  3. OCTREOTIDE. [Suspect]
     Active Substance: OCTREOTIDE
     Indication: DIARRHOEA
     Dosage: 50 UG,TID, PRN (2?3 TIMES A MONTH AND 1 INJECTION ONLY A DAY
     Route: 058
  4. METFORMIN [Concomitant]
     Active Substance: METFORMIN HYDROCHLORIDE
     Indication: PRODUCT USED FOR UNKNOWN INDICATION
     Dosage: UNK
     Route: 065
  5. RANITIDINE. [Suspect]
     Active Substance: RANITIDINE
     Indication: DUODENITIS
     Dosage: 150 MG, UNK
     Route: 048
     Dates: end: 2019
  6. SANDOSTATIN [Suspect]
     Active Substance: OCTREOTIDE ACETATE
  7. SANDOSTATIN [Suspect]
     Active Substance: OCTREOTIDE ACETATE
     Indication: CARCINOID SYNDROME
     Dosage: UNK
     Route: 058
  8. GRAVOL [Concomitant]
     Active Substance: DIMENHYDRINATE
     Indication: PRODUCT USED FOR UNKNOWN INDICATION
     Dosage: UNK
     Route: 065
  9. OCTREOTIDE. [Suspect]
     Active Substance: OCTREOTIDE
     Dosage: 50 UG, TID
     Route: 058
     Dates: start: 20190901
  10. RANITIDINE. [Suspect]
     Active Substance: RANITIDINE
     Indication: PAIN
  11. SANDOSTATIN LAR DEPOT [Suspect]
     Active Substance: OCTREOTIDE ACETATE
     Indication: CARCINOID SYNDROME
     Dosage: 30 MG, Q3W (EVERY 3 WEEKS )
     Route: 030
     Dates: start: 20070101
  12. SANDOSTATIN LAR DEPOT [Suspect]
     Active Substance: OCTREOTIDE ACETATE
     Dosage: 30 MG, Q 3?4 WEEKS
     Route: 030
     Dates: start: 20190424
  13. SANDOSTATIN LAR DEPOT [Suspect]
     Active Substance: OCTREOTIDE ACETATE
     Dosage: 30 MG, QMO
     Route: 030
  14. TUMS [Concomitant]
     Active Substance: CALCIUM CARBONATE
     Indication: PRODUCT USED FOR UNKNOWN INDICATION
     Dosage: UNK
     Route: 048

REACTIONS (52)
  - Bronchitis [Unknown]
  - Back pain [Not Recovered/Not Resolved]
  - Fall [Unknown]
  - Body temperature decreased [Unknown]
  - Abdominal discomfort [Unknown]
  - Pain [Unknown]
  - Oropharyngeal pain [Unknown]
  - Extrasystoles [Unknown]
  - Abdominal pain [Unknown]
  - Dyspepsia [Unknown]
  - Injection site pain [Recovered/Resolved]
  - Fatigue [Unknown]
  - Erythema [Recovered/Resolved]
  - Contusion [Unknown]
  - Vaginal haemorrhage [Unknown]
  - Influenza [Unknown]
  - Cough [Recovering/Resolving]
  - Injection site erythema [Recovered/Resolved]
  - Diarrhoea [Recovered/Resolved]
  - Blood glucose increased [Recovering/Resolving]
  - Abdominal pain upper [Recovered/Resolved]
  - Rash [Recovered/Resolved]
  - Blood pressure increased [Recovering/Resolving]
  - Blood pressure systolic increased [Unknown]
  - Sputum discoloured [Unknown]
  - Nightmare [Recovered/Resolved]
  - Dyspnoea [Unknown]
  - Heart rate decreased [Unknown]
  - Injection site warmth [Recovered/Resolved]
  - Blood pressure decreased [Recovering/Resolving]
  - Skin lesion [Unknown]
  - Needle issue [Unknown]
  - Inappropriate schedule of product administration [Unknown]
  - Headache [Unknown]
  - Injection site pain [Recovered/Resolved]
  - Injection site erythema [Recovered/Resolved]
  - Palpitations [Unknown]
  - Injection site pain [Recovered/Resolved]
  - Bowel movement irregularity [Unknown]
  - Tachycardia [Recovering/Resolving]
  - Injection site haemorrhage [Recovered/Resolved]
  - Atrial fibrillation [Recovered/Resolved]
  - Pain in extremity [Unknown]
  - Musculoskeletal discomfort [Unknown]
  - Tooth fracture [Unknown]
  - Heart rate irregular [Recovering/Resolving]
  - Depression [Unknown]
  - Flushing [Unknown]
  - Uterine polyp [Unknown]
  - Pyrexia [Unknown]
  - Feeling abnormal [Unknown]
  - Injection site erythema [Recovered/Resolved]

NARRATIVE: CASE EVENT DATE: 2007
